FAERS Safety Report 17032005 (Version 1)
Quarter: 2019Q4

REPORT INFORMATION
  Report Type: Spontaneous
  Country: US (occurrence: US)
  Receive Date: 20191113
  Receipt Date: 20191113
  Transmission Date: 20200122
  Serious: Yes (Hospitalization)
  Sender: FDA-Public Use
  Company Number: None

PATIENT
  Age: 72 Year
  Sex: Male

DRUGS (1)
  1. CAPECITABINE. [Suspect]
     Active Substance: CAPECITABINE
     Indication: CHOLANGIOCARCINOMA
     Route: 048
     Dates: start: 20190910

REACTIONS (8)
  - Decreased appetite [None]
  - Taste disorder [None]
  - Dehydration [None]
  - Paraesthesia [None]
  - Fatigue [None]
  - Parosmia [None]
  - Rash [None]
  - Therapy cessation [None]
